FAERS Safety Report 8111764 (Version 4)
Quarter: 2013Q1

REPORT INFORMATION
  Report Type: Report from Study
  Country: US (occurrence: US)
  Receive Date: 20110829
  Receipt Date: 20130227
  Transmission Date: 20140127
  Serious: Yes (Hospitalization)
  Sender: FDA-Public Use
  Company Number: US-UCBSA-039317

PATIENT
  Age: 55 Year
  Sex: Female
  Weight: 150 kg

DRUGS (1)
  1. CERTOLIZUMAB PEGOL [Suspect]
     Indication: RHEUMATOID ARTHRITIS
     Dosage: 400MG WEEKS AT 0, 2 AND 4 WEEKS FOLLOWED BY  200MG Q2W (AT WEEKS 6 TO 50)
     Route: 058
     Dates: start: 20110623, end: 20110929

REACTIONS (5)
  - Uterine haemorrhage [Recovered/Resolved]
  - Anaemia [Recovered/Resolved]
  - Atrial fibrillation [Recovered/Resolved]
  - Escherichia urinary tract infection [Recovered/Resolved]
  - Uterine polyp [Recovered/Resolved]
